FAERS Safety Report 14625330 (Version 1)
Quarter: 2018Q1

REPORT INFORMATION
  Report Type: Spontaneous
  Country: US (occurrence: US)
  Receive Date: 20180312
  Receipt Date: 20180312
  Transmission Date: 20180509
  Serious: No
  Sender: FDA-Public Use
  Company Number: US-ABBVIE-17K-163-2016048-00

PATIENT
  Sex: Female

DRUGS (2)
  1. LUPRON DEPOT [Suspect]
     Active Substance: LEUPROLIDE ACETATE
     Indication: PRODUCT USED FOR UNKNOWN INDICATION
     Dosage: LUPRON 3 MONTH
     Route: 050
     Dates: start: 2016, end: 2016
  2. LUPRON DEPOT [Suspect]
     Active Substance: LEUPROLIDE ACETATE
     Indication: PRODUCT USED FOR UNKNOWN INDICATION
     Route: 050
     Dates: start: 2016, end: 2016

REACTIONS (3)
  - Device issue [Not Recovered/Not Resolved]
  - Injury associated with device [Recovered/Resolved]
  - Needle issue [Unknown]

NARRATIVE: CASE EVENT DATE: 2016
